FAERS Safety Report 26204533 (Version 1)
Quarter: 2025Q4

REPORT INFORMATION
  Report Type: Report from Study
  Country: GB (occurrence: GB)
  Receive Date: 20251227
  Receipt Date: 20251227
  Transmission Date: 20260119
  Serious: Yes (Hospitalization, Other)
  Sender: CELLTRION
  Company Number: GB-CELLTRION INC.-2025GB045920

PATIENT

DRUGS (2)
  1. ADALIMUMAB-AATY [Suspect]
     Active Substance: ADALIMUMAB-AATY
     Indication: Psoriasis
     Dosage: UNK
     Route: 058
     Dates: start: 20250730, end: 20251118
  2. ADALIMUMAB-AATY [Suspect]
     Active Substance: ADALIMUMAB-AATY

REACTIONS (2)
  - Adrenocortical insufficiency acute [Unknown]
  - Intentional dose omission [Unknown]
